FAERS Safety Report 4512821-5 (Version None)
Quarter: 2004Q4

REPORT INFORMATION
  Report Type: 
  Country: None (occurrence: None)
  Receive Date: 20041130
  Receipt Date: 20041119
  Transmission Date: 20050328
  Serious: Yes (Hospitalization)
  Sender: FDA-Public Use
  Company Number: US-JNJFOC-20041105276

PATIENT
  Age: 5 Decade
  Sex: Female

DRUGS (1)
  1. REMICADE [Suspect]
     Indication: RHEUMATOID ARTHRITIS
     Dosage: TOTAL 2 INFUSIONS
     Route: 042

REACTIONS (3)
  - BACTERIAL INFECTION [None]
  - NASOPHARYNGITIS [None]
  - RESPIRATORY FAILURE [None]
